FAERS Safety Report 8761891 (Version 1)
Quarter: 2012Q4

REPORT INFORMATION
  Report Type: 
  Country: NO (occurrence: NO)
  Receive Date: 20120830
  Receipt Date: 20120830
  Transmission Date: 20130627
  Serious: Yes (Other)
  Sender: FDA-Public Use
  Company Number: NO-PFIZER INC-2012210620

PATIENT
  Age: 34 Year
  Sex: Male

DRUGS (1)
  1. LYRICA [Suspect]
     Dosage: UNK

REACTIONS (3)
  - Anxiety [Recovered/Resolved]
  - Indifference [Recovered/Resolved]
  - Psychopathic personality [Recovered/Resolved]
